FAERS Safety Report 5066405-3 (Version None)
Quarter: 2006Q3

REPORT INFORMATION
  Report Type: 
  Country: None (occurrence: None)
  Receive Date: 20060801
  Receipt Date: 19940819
  Transmission Date: 20061208
  Serious: Yes (Death)
  Sender: FDA-Public Use
  Company Number: DE-BAYER-1199411562

PATIENT
  Age: 41 Year
  Sex: Female
  Weight: 54 kg

DRUGS (1)
  1. CIPROBAY [Suspect]
     Indication: SALMONELLOSIS
     Route: 048
     Dates: start: 19940601, end: 19940601

REACTIONS (9)
  - ANXIETY [None]
  - ASTHENIA [None]
  - COMPLETED SUICIDE [None]
  - DELUSION [None]
  - DEPRESSION [None]
  - FATIGUE [None]
  - GENERAL PHYSICAL HEALTH DETERIORATION [None]
  - INSOMNIA [None]
  - THINKING ABNORMAL [None]
